FAERS Safety Report 8828934 (Version 1)
Quarter: 2012Q4

REPORT INFORMATION
  Report Type: 
  Country: US (occurrence: US)
  Receive Date: 20121008
  Receipt Date: 20121008
  Transmission Date: 20130627
  Serious: No
  Sender: FDA-Public Use
  Company Number: US-JNJFOC-20120910949

PATIENT
  Age: 64 None
  Sex: Female
  Weight: 92.08 kg

DRUGS (12)
  1. DURAGESIC [Suspect]
     Indication: PAIN
     Route: 062
     Dates: start: 2011, end: 20120922
  2. LORAZEPAM [Concomitant]
     Indication: ANXIETY
     Route: 048
     Dates: start: 1981
  3. NORTRIPTYLINE [Concomitant]
     Indication: DEPRESSION
     Route: 048
  4. VICODIN [Concomitant]
     Indication: PAIN
     Route: 048
     Dates: start: 200910
  5. AMLODIPINE [Concomitant]
     Indication: HYPERTENSION
     Route: 048
  6. AMBIEN [Concomitant]
     Indication: SLEEP DISORDER
     Route: 048
     Dates: start: 2002
  7. ATENOLOL [Concomitant]
     Indication: HYPERTENSION
     Route: 048
  8. HYDRALAZINE [Concomitant]
     Indication: HYPERTENSION
     Route: 048
  9. KLONOPIN [Concomitant]
     Indication: SLEEP DISORDER
     Route: 048
  10. KLONOPIN [Concomitant]
     Indication: BLOOD PRESSURE
     Route: 048
  11. LOSARTAN [Concomitant]
     Indication: HYPERTENSION
     Route: 048
  12. SOMA [Concomitant]
     Indication: MUSCLE RELAXANT THERAPY
     Route: 048

REACTIONS (8)
  - Withdrawal syndrome [Recovered/Resolved]
  - Paraesthesia [Recovered/Resolved]
  - Pain [Recovered/Resolved]
  - Palmar erythema [Recovered/Resolved]
  - Muscle spasms [Recovered/Resolved]
  - Decreased appetite [Recovered/Resolved]
  - Incorrect drug administration duration [Not Recovered/Not Resolved]
  - Drug dose omission [Not Recovered/Not Resolved]
